FAERS Safety Report 9136189 (Version 1)
Quarter: 2013Q1

REPORT INFORMATION
  Report Type: Spontaneous
  Country: US (occurrence: US)
  Receive Date: 20130304
  Receipt Date: 20130304
  Transmission Date: 20140127
  Serious: No
  Sender: FDA-Public Use
  Company Number: US-ABBOTT-12P-163-0938948-00

PATIENT
  Sex: Male
  Weight: 84.44 kg

DRUGS (3)
  1. ANDROGEL 1% [Suspect]
     Indication: BLOOD TESTOSTERONE FREE DECREASED
     Dosage: ONE PACKET
     Dates: start: 201103, end: 201203
  2. ANDROGEL 1% [Suspect]
     Indication: GYNAECOMASTIA
  3. CELEXA [Concomitant]
     Indication: DEPRESSION

REACTIONS (6)
  - Blood testosterone abnormal [Not Recovered/Not Resolved]
  - Gynaecomastia [Not Recovered/Not Resolved]
  - Haemoglobin increased [Unknown]
  - Product quality issue [Not Recovered/Not Resolved]
  - Drug ineffective [Not Recovered/Not Resolved]
  - Incorrect storage of drug [Unknown]
